FAERS Safety Report 15408885 (Version 1)
Quarter: 2018Q3

REPORT INFORMATION
  Report Type: Spontaneous
  Country: TW (occurrence: TW)
  Receive Date: 20180920
  Receipt Date: 20180920
  Transmission Date: 20181010
  Serious: Yes (Hospitalization)
  Sender: FDA-Public Use
  Company Number: TW-FRESENIUS KABI-FK201809787

PATIENT
  Age: 25 Year
  Sex: Male

DRUGS (3)
  1. BLEOMYCIN [Concomitant]
     Active Substance: BLEOMYCIN SULFATE
     Indication: TESTIS CANCER
     Route: 042
  2. ETOPOSIDE (MANUFACTURER UNKNOWN) [Suspect]
     Active Substance: ETOPOSIDE
     Indication: TESTIS CANCER
     Route: 042
  3. CISPLATIN (MANUFACTURER UNKNOWN) [Suspect]
     Active Substance: CISPLATIN
     Indication: TESTIS CANCER
     Route: 042

REACTIONS (1)
  - Aspermia [Unknown]
